FAERS Safety Report 6298655-2 (Version None)
Quarter: 2009Q3

REPORT INFORMATION
  Report Type: 
  Country: None (occurrence: None)
  Receive Date: 20090804
  Receipt Date: 20090721
  Transmission Date: 20100115
  Serious: Yes (Other)
  Sender: FDA-Public Use
  Company Number: 237211K09USA

PATIENT
  Age: 39 Year
  Sex: Female
  Weight: 65 kg

DRUGS (15)
  1. REBIF [Suspect]
     Indication: MULTIPLE SCLEROSIS
     Dosage: 8.8 MCG, 3 IN 1 WEEKS, SUBCUTANEOUS
     Route: 058
     Dates: start: 20090601, end: 20090603
  2. COUMADIN [Concomitant]
  3. ADVAIR DISKUS (SERETIDE) [Concomitant]
  4. ALBUTEROL SULFATE [Concomitant]
  5. ALPRAZOLAM [Concomitant]
  6. BENADRYL [Concomitant]
  7. CYCLOBENZAPRINE HYDROCHLORIDE [Concomitant]
  8. DEPO-PROVERA [Concomitant]
  9. FLUTICASONE PROPIONATE [Concomitant]
  10. FOLIC ACID [Concomitant]
  11. IBUPROFEN [Concomitant]
  12. KLONOPIN [Concomitant]
  13. LYRICA [Concomitant]
  14. OXYCODONE-ACETAMINOPHEN (OXYCODONE/APAP) [Concomitant]
  15. VENTOLIN (SALBUTAMOL /00139501/) [Concomitant]

REACTIONS (4)
  - INJECTION SITE PAIN [None]
  - PNEUMONIA [None]
  - PROTHROMBIN LEVEL DECREASED [None]
  - PULMONARY THROMBOSIS [None]
